FAERS Safety Report 21098386 (Version 2)
Quarter: 2022Q3

REPORT INFORMATION
  Report Type: Report from Study
  Country: FR (occurrence: None)
  Receive Date: 20220719
  Receipt Date: 20220908
  Transmission Date: 20221027
  Serious: Yes (Other)
  Sender: FDA-Public Use
  Company Number: FR-ROCHE-3141235

PATIENT
  Age: 38 Year
  Sex: Female
  Weight: 65 kg

DRUGS (5)
  1. ATEZOLIZUMAB [Suspect]
     Active Substance: ATEZOLIZUMAB
     Indication: Soft tissue sarcoma
     Dosage: MOST RECENT DOSE: 29/JUN/2022
     Route: 041
     Dates: start: 20220629
  2. COBIMETINIB [Suspect]
     Active Substance: COBIMETINIB
     Indication: Soft tissue sarcoma
     Dosage: 21 DAYS ON / 7 DAYS OFF,?MOST RECENT DOSE: 12/JUL/2022
     Route: 048
     Dates: start: 20220629
  3. PAROXETINE HYDROCHLORIDE [Concomitant]
     Active Substance: PAROXETINE HYDROCHLORIDE
     Route: 048
     Dates: start: 2021
  4. DONORMYL [Concomitant]
     Route: 048
     Dates: start: 2021
  5. OXAZEPAM [Concomitant]
     Active Substance: OXAZEPAM
     Route: 048
     Dates: start: 2021

REACTIONS (1)
  - Blood creatine phosphokinase increased [Recovered/Resolved]

NARRATIVE: CASE EVENT DATE: 20220713
